FAERS Safety Report 7270334-4 (Version None)
Quarter: 2011Q1

REPORT INFORMATION
  Report Type: 
  Country: None (occurrence: None)
  Receive Date: 20110202
  Receipt Date: 20101229
  Transmission Date: 20110831
  Serious: Yes (Other)
  Sender: FDA-Public Use
  Company Number: US-BAYER-2010-008637

PATIENT
  Sex: Male

DRUGS (3)
  1. TYLENOL (CAPLET) [Concomitant]
     Indication: PREMEDICATION
     Dosage: 500 MG, UNK
  2. CELEXA [Concomitant]
     Dosage: 40 MG, UNK
  3. BETASERON [Suspect]
     Indication: SECONDARY PROGRESSIVE MULTIPLE SCLEROSIS
     Dosage: 2 MIU, QOD
     Route: 058
     Dates: start: 20101220, end: 20101222

REACTIONS (4)
  - SUICIDAL IDEATION [None]
  - FEELING ABNORMAL [None]
  - INFLUENZA LIKE ILLNESS [None]
  - PYREXIA [None]
